FAERS Safety Report 8218606-0 (Version None)
Quarter: 2012Q1

REPORT INFORMATION
  Report Type: 
  Country: None (occurrence: None)
  Receive Date: 20120319
  Receipt Date: 20120306
  Transmission Date: 20120608
  Serious: Yes (Hospitalization)
  Sender: FDA-Public Use
  Company Number: US-NOVOPROD-331748

PATIENT
  Age: 57 Year
  Sex: Male
  Weight: 104.4 kg

DRUGS (2)
  1. LIRAGLUTIDE FLEXPEN [Suspect]
     Indication: TYPE 2 DIABETES MELLITUS
     Dosage: 1.2 MG, QD
     Route: 058
     Dates: start: 20110628, end: 20110711
  2. LIRAGLUTIDE FLEXPEN [Suspect]
     Dosage: 0.6 MG, QD
     Route: 058
     Dates: start: 20110715

REACTIONS (1)
  - ANGINA PECTORIS [None]
